FAERS Safety Report 25930324 (Version 2)
Quarter: 2025Q4

REPORT INFORMATION
  Report Type: Report from Study
  Country: EU (occurrence: EU)
  Receive Date: 20251016
  Receipt Date: 20251020
  Transmission Date: 20260119
  Serious: Yes (Hospitalization)
  Sender: ABBVIE
  Company Number: EU-ABBVIE-6503345

PATIENT
  Age: 90 Year
  Sex: Female

DRUGS (3)
  1. CARBIDOPA [Suspect]
     Active Substance: CARBIDOPA
     Indication: Parkinson^s disease
     Dosage: CONTINUOUS DOSE LOWERED.
     Route: 050
     Dates: start: 202510
  2. CARBIDOPA [Suspect]
     Active Substance: CARBIDOPA
     Route: 050
     Dates: start: 20221114
  3. CARBIDOPA [Suspect]
     Active Substance: CARBIDOPA
     Route: 050

REACTIONS (5)
  - Cholelithiasis [Not Recovered/Not Resolved]
  - Cholecystitis [Not Recovered/Not Resolved]
  - Device use error [Not Recovered/Not Resolved]
  - Dyskinesia [Recovered/Resolved]
  - Illness [Unknown]

NARRATIVE: CASE EVENT DATE: 20251012
